FAERS Safety Report 4968951-7 (Version None)
Quarter: 2006Q2

REPORT INFORMATION
  Report Type: 
  Country: None (occurrence: None)
  Receive Date: 20060411
  Receipt Date: 20051014
  Transmission Date: 20061013
  Serious: Yes (Hospitalization)
  Sender: FDA-Public Use
  Company Number: US-MERCK-0510USA07473

PATIENT
  Age: 60 Year
  Sex: Female
  Weight: 59 kg

DRUGS (8)
  1. VIOXX [Suspect]
     Indication: RHEUMATOID ARTHRITIS
     Route: 048
     Dates: start: 19990901, end: 20041001
  2. VIOXX [Suspect]
     Route: 048
     Dates: start: 19990901, end: 20041001
  3. PREDNISONE [Concomitant]
     Route: 065
  4. WELLBUTRIN [Concomitant]
     Indication: DEPRESSION
     Route: 065
     Dates: start: 19970101
  5. PREMARIN [Concomitant]
     Indication: HORMONE REPLACEMENT THERAPY
     Route: 065
     Dates: start: 19800101, end: 20020101
  6. TYLENOL W/ CODEINE NO. 3 [Concomitant]
     Route: 065
  7. NIFEDIPINE [Concomitant]
     Route: 065
  8. TYLENOL (CAPLET) [Concomitant]
     Indication: PAIN
     Route: 065
     Dates: start: 19800101

REACTIONS (7)
  - ARTERIOSCLEROSIS [None]
  - ARTHROPATHY [None]
  - BLOOD CHOLESTEROL INCREASED [None]
  - BONE DISORDER [None]
  - MYOCARDIAL INFARCTION [None]
  - OEDEMA PERIPHERAL [None]
  - PANIC ATTACK [None]
